FAERS Safety Report 8129882-7 (Version None)
Quarter: 2012Q1

REPORT INFORMATION
  Report Type: 
  Country: None (occurrence: None)
  Receive Date: 20120210
  Receipt Date: 20120103
  Transmission Date: 20120608
  Serious: No
  Sender: FDA-Public Use
  Company Number: US-COVIDIEN/TYCO HEALTHCARE/MALLINCKRODT-T201200007

PATIENT
  Age: 58 Year
  Sex: Female
  Weight: 70.295 kg

DRUGS (2)
  1. PENNSAID [Suspect]
     Indication: MUSCULOSKELETAL PAIN
  2. PENNSAID [Suspect]
     Indication: ARTHRITIS
     Dosage: 30 GTT, BID TO EACH SHOULDER
     Route: 061
     Dates: start: 20111213, end: 20111224

REACTIONS (5)
  - PAIN IN EXTREMITY [None]
  - FATIGUE [None]
  - HEADACHE [None]
  - INFLUENZA LIKE ILLNESS [None]
  - DIZZINESS [None]
